FAERS Safety Report 7015711-1 (Version None)
Quarter: 2010Q3

REPORT INFORMATION
  Report Type: 
  Country: None (occurrence: None)
  Receive Date: 20100927
  Receipt Date: 20100421
  Transmission Date: 20110219
  Serious: No
  Sender: FDA-Public Use
  Company Number: US-ASTRAZENECA-2008UW17761

PATIENT
  Sex: Female

DRUGS (9)
  1. ARIMIDEX [Suspect]
     Indication: BREAST CANCER
     Route: 048
     Dates: start: 20070901, end: 20100301
  2. BIPOLAR DRUGS [Interacting]
     Indication: BIPOLAR DISORDER
     Route: 065
  3. THYROID MEDS [Interacting]
     Route: 065
  4. LAMICTAL [Concomitant]
  5. RISPERDAL [Concomitant]
  6. ADDERALL 10 [Concomitant]
  7. XANAX [Concomitant]
  8. SYNTHROID [Concomitant]
  9. CALCIUM [Concomitant]

REACTIONS (13)
  - ARTHRALGIA [None]
  - ARTHRITIS [None]
  - BIPOLAR DISORDER [None]
  - CONSTIPATION [None]
  - DRUG INTERACTION [None]
  - DRY SKIN [None]
  - ERYTHEMA [None]
  - INSOMNIA [None]
  - OSTEOPOROSIS [None]
  - ROSACEA [None]
  - SKIN ATROPHY [None]
  - SKIN DISORDER [None]
  - VARICOSE VEIN [None]
